FAERS Safety Report 24932282 (Version 1)
Quarter: 2025Q1

REPORT INFORMATION
  Report Type: Report from Study
  Country: US (occurrence: US)
  Receive Date: 20250205
  Receipt Date: 20250205
  Transmission Date: 20250409
  Serious: No
  Sender: EXELIXIS
  Company Number: US-EXELIXIS-CABO-24080180

PATIENT
  Sex: Male

DRUGS (3)
  1. CABOMETYX [Suspect]
     Active Substance: CABOZANTINIB S-MALATE
     Indication: Renal cancer
     Dosage: 20 MG, QD
     Route: 048
     Dates: start: 202407
  2. CABOMETYX [Suspect]
     Active Substance: CABOZANTINIB S-MALATE
     Dosage: 20 MG, QD
     Route: 048
  3. INLYTA [Concomitant]
     Active Substance: AXITINIB

REACTIONS (6)
  - Movement disorder [Recovering/Resolving]
  - Disorientation [Recovering/Resolving]
  - Dysphonia [Unknown]
  - Dizziness [Recovering/Resolving]
  - Decreased appetite [Recovering/Resolving]
  - Stomatitis [Recovering/Resolving]
